FAERS Safety Report 9613204 (Version 2)
Quarter: 2013Q4

REPORT INFORMATION
  Report Type: Report from Study
  Country: DE (occurrence: DE)
  Receive Date: 20131010
  Receipt Date: 20131010
  Transmission Date: 20140711
  Serious: Yes (Death, Life-Threatening, Hospitalization)
  Sender: FDA-Public Use
  Company Number: DE-LLY01-DE200705003393

PATIENT
  Sex: Female
  Weight: 66 kg

DRUGS (2)
  1. GEMCITABINE HYDROCHLORIDE [Suspect]
     Indication: BREAST CANCER
     Dosage: 1660 MG, UNK
     Route: 042
     Dates: start: 20070208
  2. DOCETAXEL [Suspect]
     Indication: BREAST CANCER
     Dates: start: 20070208

REACTIONS (4)
  - Septic shock [Fatal]
  - Sepsis [Not Recovered/Not Resolved]
  - Pneumonia [Not Recovered/Not Resolved]
  - Lung infiltration [Unknown]
